FAERS Safety Report 22646330 (Version 1)
Quarter: 2023Q2

REPORT INFORMATION
  Report Type: Report from Study
  Country: CA (occurrence: CA)
  Receive Date: 20230627
  Receipt Date: 20230627
  Transmission Date: 20230721
  Serious: Yes (Other)
  Sender: FDA-Public Use
  Company Number: CA-PFIZER INC-202300191905

PATIENT
  Age: 63 Year
  Sex: Male

DRUGS (1)
  1. ADALIMUMAB [Suspect]
     Active Substance: ADALIMUMAB
     Indication: Crohn^s disease
     Dosage: 40 MG, WEEKLY (1 EVERY 7 DAYS)
     Route: 058

REACTIONS (5)
  - Chills [Unknown]
  - Pain [Unknown]
  - Pyrexia [Unknown]
  - Swelling face [Unknown]
  - B-cell lymphoma [Unknown]
